FAERS Safety Report 17614302 (Version 1)
Quarter: 2020Q2

REPORT INFORMATION
  Report Type: Report from Study
  Country: US (occurrence: US)
  Receive Date: 20200402
  Receipt Date: 20200402
  Transmission Date: 20200713
  Serious: No
  Sender: FDA-Public Use
  Company Number: NVSC2020US087442

PATIENT
  Age: 35 Year
  Sex: Female

DRUGS (1)
  1. GILENYA [Suspect]
     Active Substance: FINGOLIMOD HYDROCHLORIDE
     Indication: MULTIPLE SCLEROSIS
     Dosage: 0.5 MG, QD
     Route: 048

REACTIONS (7)
  - Cyst [Unknown]
  - Agitation [Unknown]
  - Central nervous system lesion [Unknown]
  - Nasal cyst [Unknown]
  - Anxiety [Unknown]
  - Breast cyst [Unknown]
  - Irritability [Unknown]

NARRATIVE: CASE EVENT DATE: 20200222
